FAERS Safety Report 8428098-4 (Version None)
Quarter: 2012Q2

REPORT INFORMATION
  Report Type: 
  Country: None (occurrence: None)
  Receive Date: 20120611
  Receipt Date: 20120328
  Transmission Date: 20120825
  Serious: No
  Sender: FDA-Public Use
  Company Number: US-ASTRAZENECA-2012SE21060

PATIENT
  Age: 24 Year
  Sex: Female
  Weight: 54.4 kg

DRUGS (1)
  1. RHINOCORT [Suspect]
     Indication: MULTIPLE ALLERGIES
     Dosage: TWO SPRAYS PER, ONCE DAILY
     Route: 045
     Dates: start: 20120312

REACTIONS (6)
  - DYSPNOEA [None]
  - DYSPHONIA [None]
  - INFLUENZA [None]
  - OFF LABEL USE [None]
  - DRY THROAT [None]
  - COUGH [None]
